FAERS Safety Report 9638443 (Version 1)
Quarter: 2013Q4

REPORT INFORMATION
  Report Type: Spontaneous
  Country: IT (occurrence: IT)
  Receive Date: 20131022
  Receipt Date: 20131022
  Transmission Date: 20140711
  Serious: Yes (Other)
  Sender: FDA-Public Use
  Company Number: IT-TEVA-437756ISR

PATIENT
  Age: 76 Year
  Sex: Female

DRUGS (1)
  1. CEFAZOLINA TEVA [Suspect]
     Indication: BRONCHITIS
     Dosage: 1 DOSAGE FORMS DAILY; POWDER AND SOLVENT FOR SOLUTION FOR INJECTION
     Route: 030
     Dates: start: 20130709, end: 20130709

REACTIONS (4)
  - Anaphylactic shock [Unknown]
  - Cold sweat [Unknown]
  - Syncope [Unknown]
  - Vomiting [Unknown]
